FAERS Safety Report 10334031 (Version 3)
Quarter: 2014Q3

REPORT INFORMATION
  Report Type: Spontaneous
  Country: JP (occurrence: JP)
  Receive Date: 20140723
  Receipt Date: 20140807
  Transmission Date: 20150326
  Serious: Yes (Life-Threatening, Other)
  Sender: FDA-Public Use
  Company Number: JP-ROCHE-1421118

PATIENT
  Age: 67 Year
  Sex: Female
  Weight: 34 kg

DRUGS (10)
  1. 5-FLUOROURACIL [Suspect]
     Active Substance: FLUOROURACIL
     Indication: RECTAL CANCER METASTATIC
     Route: 041
     Dates: start: 20130709, end: 20131224
  2. CAMPTO [Concomitant]
     Active Substance: IRINOTECAN
     Indication: RECTAL CANCER METASTATIC
     Route: 041
     Dates: start: 20130709, end: 20131224
  3. 5-FLUOROURACIL [Suspect]
     Active Substance: FLUOROURACIL
     Indication: RECTAL CANCER METASTATIC
     Dosage: DOSAGE IS UNCERTAIN.
     Route: 041
     Dates: start: 20140304, end: 20140610
  4. ALOXI [Concomitant]
     Active Substance: PALONOSETRON HYDROCHLORIDE
     Route: 065
  5. AVASTIN [Suspect]
     Active Substance: BEVACIZUMAB
     Indication: RECTAL CANCER METASTATIC
     Route: 041
     Dates: start: 20120710, end: 20140610
  6. ELPLAT [Suspect]
     Active Substance: OXALIPLATIN
     Route: 041
     Dates: start: 20140304, end: 20140610
  7. 5-FLUOROURACIL [Suspect]
     Active Substance: FLUOROURACIL
     Indication: RECTAL CANCER METASTATIC
     Route: 041
     Dates: start: 20120710, end: 20130625
  8. LEVOFOLINATE [Concomitant]
     Active Substance: LEVOLEUCOVORIN CALCIUM
     Indication: COLON CANCER
     Route: 041
     Dates: start: 20120710, end: 20140610
  9. ELPLAT [Suspect]
     Active Substance: OXALIPLATIN
     Indication: RECTAL CANCER METASTATIC
     Route: 041
     Dates: start: 20120710, end: 20130625
  10. DECADRON [Concomitant]
     Active Substance: DEXAMETHASONE
     Route: 065

REACTIONS (7)
  - Convulsion [Recovered/Resolved]
  - Extrasystoles [Recovered/Resolved]
  - Hemiplegia [Recovered/Resolved]
  - Cold sweat [Unknown]
  - Hypertension [Recovered/Resolved with Sequelae]
  - Feeling abnormal [Unknown]
  - Altered state of consciousness [Recovered/Resolved]

NARRATIVE: CASE EVENT DATE: 20140610
